FAERS Safety Report 6618112-0 (Version None)
Quarter: 2010Q1

REPORT INFORMATION
  Report Type: 
  Country: None (occurrence: None)
  Receive Date: 20100302
  Receipt Date: 20100222
  Transmission Date: 20100710
  Serious: Yes (Hospitalization)
  Sender: FDA-Public Use
  Company Number: 2010SP011010

PATIENT
  Sex: Female
  Weight: 55 kg

DRUGS (6)
  1. PEG-INTRON [Suspect]
     Indication: HEPATITIS C
     Dosage: 0.5 ML;QW
     Dates: start: 20091201
  2. IBUPROFEN [Suspect]
     Indication: DRUG USE FOR UNKNOWN INDICATION
  3. COPEGUS (CON.) [Concomitant]
  4. KLOTRIPTYL /00033501/ (CON.) [Concomitant]
  5. SEROQUEL (CON.) [Concomitant]
  6. OPAMOX (CON.) [Concomitant]

REACTIONS (3)
  - GASTRITIS EROSIVE [None]
  - PERFORATED ULCER [None]
  - PERITONITIS [None]
